FAERS Safety Report 13087415 (Version 1)
Quarter: 2017Q1

REPORT INFORMATION
  Report Type: Spontaneous
  Country: US (occurrence: US)
  Receive Date: 20170105
  Receipt Date: 20170105
  Transmission Date: 20170428
  Serious: No
  Sender: FDA-Public Use
  Company Number: ALCN2017US000482

PATIENT
  Sex: Female

DRUGS (1)
  1. NEO AND POLYMYXIN B SULFATES + DEX (ALC) [Suspect]
     Active Substance: DEXAMETHASONE\NEOMYCIN SULFATE\POLYMYXIN B SULFATE
     Indication: PRODUCT USED FOR UNKNOWN INDICATION
     Route: 065

REACTIONS (4)
  - Pruritus [Unknown]
  - Hypoaesthesia [Unknown]
  - Eye pruritus [Unknown]
  - Paraesthesia [None]
